FAERS Safety Report 10944414 (Version 1)
Quarter: 2015Q1

REPORT INFORMATION
  Report Type: Spontaneous
  Country: US (occurrence: US)
  Receive Date: 20150323
  Receipt Date: 20150323
  Transmission Date: 20150721
  Serious: No
  Sender: FDA-Public Use
  Company Number: US-TEVA-539532USA

PATIENT
  Sex: Female

DRUGS (5)
  1. PREMARIN [Concomitant]
     Active Substance: ESTROGENS, CONJUGATED
     Route: 067
  2. CLARITHROMYCIN. [Concomitant]
     Active Substance: CLARITHROMYCIN
  3. SUCRALFATE. [Suspect]
     Active Substance: SUCRALFATE
     Indication: HELICOBACTER INFECTION
     Dosage: 3 GRAM DAILY;
     Route: 048
     Dates: start: 20141226, end: 201501
  4. AMOXICILLIN. [Concomitant]
     Active Substance: AMOXICILLIN
  5. METRONIDAZOLE. [Concomitant]
     Active Substance: METRONIDAZOLE

REACTIONS (4)
  - Nausea [Recovered/Resolved]
  - Dizziness [Recovered/Resolved]
  - Gastrooesophageal reflux disease [Recovered/Resolved]
  - Epigastric discomfort [Recovered/Resolved]
